FAERS Safety Report 11111135 (Version 2)
Quarter: 2015Q2

REPORT INFORMATION
  Report Type: Spontaneous
  Country: US (occurrence: US)
  Receive Date: 20150513
  Receipt Date: 20150603
  Transmission Date: 20150821
  Serious: Yes (Hospitalization)
  Sender: FDA-Public Use
  Company Number: US-INCYTE CORPORATION-2015IN001988

PATIENT
  Age: 49 Year
  Sex: Female

DRUGS (7)
  1. ATIVAN [Concomitant]
     Active Substance: LORAZEPAM
  2. JAKAFI [Suspect]
     Active Substance: RUXOLITINIB
     Dosage: 10 MG, 1 TABLET IN THE AM AND 2 TABLETS IN THE PM
     Route: 048
     Dates: start: 20150129
  3. PROTONIX [Concomitant]
     Active Substance: PANTOPRAZOLE SODIUM
  4. POTASSIUM [Concomitant]
     Active Substance: POTASSIUM
  5. COUMADIN [Concomitant]
     Active Substance: WARFARIN SODIUM
  6. EXJADE [Concomitant]
     Active Substance: DEFERASIROX
  7. BOSULIF [Concomitant]
     Active Substance: BOSUTINIB MONOHYDRATE

REACTIONS (4)
  - Platelet count increased [Unknown]
  - Platelet count decreased [Unknown]
  - Blood calcium decreased [Unknown]
  - Haemoglobin decreased [Unknown]

NARRATIVE: CASE EVENT DATE: 20150501
